FAERS Safety Report 7185486-4 (Version None)
Quarter: 2010Q4

REPORT INFORMATION
  Report Type: 
  Country: None (occurrence: None)
  Receive Date: 20101222
  Receipt Date: 20100604
  Transmission Date: 20110411
  Serious: No
  Sender: FDA-Public Use
  Company Number: US-AMGEN-KDL416551

PATIENT

DRUGS (10)
  1. ENBREL [Suspect]
     Indication: PRODUCT USED FOR UNKNOWN INDICATION
     Dosage: 50 MG, QWK
     Route: 058
  2. CLONAZEPAM [Concomitant]
     Dosage: 1 MG, UNK
  3. RALOXIFEN HCL [Concomitant]
     Dosage: 60 MG, UNK
  4. SERTRALINE HYDROCHLORIDE [Concomitant]
     Dosage: 50 MG, UNK
  5. PREDNISONE [Concomitant]
     Dosage: 1 MG, UNK
  6. ACETAMINOPHEN AND HYDROCODONE BITARTRATE [Concomitant]
     Dosage: 500 MG, UNK
  7. SUCRALFATE [Concomitant]
     Dosage: 1 G, UNK
  8. HYDROCODONE BITARTRATE [Concomitant]
  9. ERGOCALCIFEROL [Concomitant]
     Dosage: 50000 IU, UNK
  10. SULFASALAZINE [Concomitant]
     Dosage: 500 MG, UNK

REACTIONS (2)
  - HEADACHE [None]
  - INJECTION SITE HAEMATOMA [None]
